FAERS Safety Report 4351257-7 (Version None)
Quarter: 2004Q2

REPORT INFORMATION
  Report Type: 
  Country: None (occurrence: None)
  Receive Date: 20040430
  Receipt Date: 20040430
  Transmission Date: 20050107
  Serious: Yes (Hospitalization)
  Sender: FDA-Public Use
  Company Number: None

PATIENT
  Age: 59 Year
  Sex: Male
  Weight: 72 kg

DRUGS (1)
  1. MONTELUKAST [Suspect]
     Indication: ASTHMA
     Dosage: 10 MG QD
     Dates: start: 20030127, end: 20040201

REACTIONS (1)
  - ALLERGIC GRANULOMATOUS ANGIITIS [None]
